FAERS Safety Report 7048157-0 (Version None)
Quarter: 2010Q4

REPORT INFORMATION
  Report Type: 
  Country: None (occurrence: None)
  Receive Date: 20101014
  Receipt Date: 20101014
  Transmission Date: 20110411
  Serious: Yes (Hospitalization)
  Sender: FDA-Public Use
  Company Number: None

PATIENT
  Age: 64 Year
  Sex: Female
  Weight: 81.646 kg

DRUGS (1)
  1. PIOGLITAZONE [Suspect]
     Dosage: 30 MG DAILY BY MOUTH
     Route: 048
     Dates: start: 20100408

REACTIONS (5)
  - FALL [None]
  - HEAD INJURY [None]
  - HEADACHE [None]
  - NAUSEA [None]
  - PAIN [None]
